FAERS Safety Report 7344999-2 (Version None)
Quarter: 2011Q1

REPORT INFORMATION
  Report Type: 
  Country: None (occurrence: None)
  Receive Date: 20110302
  Receipt Date: 20110210
  Transmission Date: 20110831
  Serious: No
  Sender: FDA-Public Use
  Company Number: 2011-00060

PATIENT
  Age: 46 Year
  Sex: Female
  Weight: 90.7194 kg

DRUGS (2)
  1. ZICAM COLD REMEDY PLUS LIQUI-LOZ [Suspect]
     Dosage: ONCE
     Dates: start: 20110209, end: 20110209
  2. PROZAC [Concomitant]

REACTIONS (2)
  - HYPOGEUSIA [None]
  - GLOSSODYNIA [None]
